FAERS Safety Report 8353800 (Version 2)
Quarter: 2013Q2

REPORT INFORMATION
  Report Type: Spontaneous
  Country: JP (occurrence: JP)
  Receive Date: 20120125
  Receipt Date: 20130401
  Transmission Date: 20140414
  Serious: Yes (Death)
  Sender: FDA-Public Use
  Company Number: JP-ASTELLAS-2012JP000463

PATIENT
  Age: 76 Year
  Sex: Female

DRUGS (15)
  1. PROGRAF [Suspect]
     Indication: RHEUMATOID ARTHRITIS
     Dosage: 1 MG, UID/QD
     Route: 048
     Dates: start: 20100511, end: 20111227
  2. NIVADIL [Concomitant]
     Indication: RHEUMATOID ARTHRITIS
     Dosage: 2 MG, BID
     Route: 048
     Dates: start: 20080902, end: 20111227
  3. LUVOX [Concomitant]
     Indication: PSYCHIATRIC SYMPTOM
     Dosage: 25 MG, UID/QD
     Route: 048
     Dates: start: 20110627, end: 20111227
  4. PREDONINE [Concomitant]
     Indication: RHEUMATOID ARTHRITIS
     Dosage: 2.5 MG, UID/QD
     Route: 048
     Dates: start: 20070312, end: 20110314
  5. PREDONINE [Concomitant]
     Dosage: 3.75 MG, BID
     Route: 048
     Dates: start: 20110314, end: 20110524
  6. PREDONINE [Concomitant]
     Dosage: 3.5 MG, BID
     Route: 048
     Dates: start: 20110524, end: 20110627
  7. PREDONINE [Concomitant]
     Dosage: 5 MG, BID
     Route: 048
     Dates: start: 20110627, end: 20111227
  8. EDIROL [Concomitant]
     Indication: OSTEOPOROSIS
     Dosage: 0.75 UG, UID/QD
     Route: 048
     Dates: start: 20110510, end: 20111227
  9. PLAVIX [Concomitant]
     Indication: THROMBOSIS PROPHYLAXIS
     Dosage: 75 MG, UID/QD
     Route: 048
     Dates: start: 20110510, end: 20111227
  10. NATRIX [Concomitant]
     Indication: HYPERTENSION
     Dosage: 0.25 MG, UID/QD
     Route: 048
     Dates: start: 20111213, end: 20111227
  11. LYRICA [Concomitant]
     Indication: PAIN
     Dosage: 75 MG, BID
     Route: 048
     Dates: start: 20110627, end: 20111227
  12. TAKEPRON [Concomitant]
     Indication: PROPHYLAXIS
     Dosage: 15 MG, UID/QD
     Route: 048
     Dates: start: 20101012, end: 20111227
  13. DIOVAN [Concomitant]
     Indication: HYPERTENSION
     Dosage: 80 MG, UID/QD
     Route: 048
     Dates: start: 20070312, end: 20111227
  14. DEPAS [Concomitant]
     Indication: INSOMNIA
     Dosage: 0.5 MG, UID/QD
     Route: 048
     Dates: start: 20090407, end: 20111227
  15. RHEUMATREX                         /00113801/ [Concomitant]
     Indication: RHEUMATOID ARTHRITIS
     Dosage: 2 MG, BID
     Route: 048
     Dates: start: 20070521, end: 20110825

REACTIONS (2)
  - Intentional drug misuse [Unknown]
  - Hepatitis C [Fatal]
